FAERS Safety Report 11544693 (Version 2)
Quarter: 2015Q4

REPORT INFORMATION
  Report Type: Spontaneous
  Country: US (occurrence: US)
  Receive Date: 20150924
  Receipt Date: 20151207
  Transmission Date: 20160304
  Serious: Yes (Other)
  Sender: FDA-Public Use
  Company Number: US-BAYER-2015-423604

PATIENT
  Age: 21 Year
  Sex: Female
  Weight: 58.96 kg

DRUGS (3)
  1. MIRENA [Suspect]
     Active Substance: LEVONORGESTREL
     Indication: CONTRACEPTION
     Dosage: 20 MCG/24HR, CONT
     Route: 015
     Dates: start: 20100928, end: 20120906
  2. NECON [Concomitant]
     Active Substance: ETHINYL ESTRADIOL\NORETHINDRONE
     Indication: VAGINAL HAEMORRHAGE
  3. DEPO-PROVERA [Concomitant]
     Active Substance: MEDROXYPROGESTERONE ACETATE

REACTIONS (9)
  - Asthenia [None]
  - Injury [None]
  - Pain [None]
  - Polymenorrhoea [None]
  - Anxiety [None]
  - Emotional distress [None]
  - Nervousness [None]
  - Device dislocation [None]
  - Psychological trauma [None]

NARRATIVE: CASE EVENT DATE: 201009
